FAERS Safety Report 5913248-1 (Version None)
Quarter: 2008Q4

REPORT INFORMATION
  Report Type: 
  Country: None (occurrence: None)
  Receive Date: 20081009
  Receipt Date: 20081003
  Transmission Date: 20090506
  Serious: Yes (Hospitalization)
  Sender: FDA-Public Use
  Company Number: US-ASTRAZENECA-2008UW21578

PATIENT
  Age: 32043 Day
  Sex: Male

DRUGS (8)
  1. PRILOSEC [Suspect]
     Route: 048
     Dates: start: 20080807, end: 20080826
  2. RANEXA [Suspect]
     Indication: ANGINA PECTORIS
     Route: 048
     Dates: start: 20080807, end: 20080825
  3. RANEXA [Suspect]
     Route: 048
     Dates: start: 20080826, end: 20080830
  4. ATENOLOL [Concomitant]
  5. CLOPIDOGREL [Concomitant]
  6. ASPIRIN [Concomitant]
  7. SIMVASTATIN [Concomitant]
  8. NITROGLYCERIN [Concomitant]
     Route: 062

REACTIONS (2)
  - MYOCARDIAL INFARCTION [None]
  - RASH [None]
